FAERS Safety Report 6568191-4 (Version None)
Quarter: 2010Q1

REPORT INFORMATION
  Report Type: 
  Country: None (occurrence: None)
  Receive Date: 20100203
  Receipt Date: 20100125
  Transmission Date: 20100710
  Serious: Yes (Death)
  Sender: FDA-Public Use
  Company Number: CA-ROCHE-679656

PATIENT
  Sex: Female
  Weight: 93 kg

DRUGS (11)
  1. PEGASYS [Suspect]
     Indication: HEPATITIS C
     Route: 058
     Dates: start: 20091125, end: 20100112
  2. COPEGUS [Suspect]
     Indication: HEPATITIS C
     Route: 048
     Dates: start: 20091125, end: 20100112
  3. MISOPROSTOL [Concomitant]
     Route: 048
  4. FLUOXETINE [Concomitant]
     Route: 048
  5. PREVACID [Concomitant]
     Route: 048
  6. AZATHIOPRINE [Concomitant]
     Route: 048
  7. FUROSEMIDE [Concomitant]
     Route: 048
  8. PREDNISONE [Concomitant]
     Route: 048
  9. FENTANYL [Concomitant]
  10. ORTHO TRI-CYCLEN [Concomitant]
  11. DIDRONEL [Concomitant]

REACTIONS (1)
  - PULMONARY EMBOLISM [None]
